FAERS Safety Report 8943248 (Version 2)
Quarter: 2012Q4

REPORT INFORMATION
  Report Type: 
  Country: TR (occurrence: TR)
  Receive Date: 20121204
  Receipt Date: 20121210
  Transmission Date: 20130627
  Serious: Yes (Other)
  Sender: FDA-Public Use
  Company Number: TR-BAYER-2012-126146

PATIENT

DRUGS (1)
  1. KOGENATE FS [Suspect]

REACTIONS (1)
  - Hepatitis C [None]
